FAERS Safety Report 25391343 (Version 1)
Quarter: 2025Q2

REPORT INFORMATION
  Report Type: Spontaneous
  Country: US (occurrence: US)
  Receive Date: 20250603
  Receipt Date: 20250603
  Transmission Date: 20250716
  Serious: No
  Sender: MYLAN
  Company Number: US-MYLANLABS-2025M1043975

PATIENT
  Sex: Female

DRUGS (1)
  1. BREYNA [Suspect]
     Active Substance: BUDESONIDE\FORMOTEROL FUMARATE
     Indication: Lung neoplasm malignant
     Dosage: 320 PER 9 MICROGRAM, BID (2 PUFFS IN THE MORNING AND 2 PUFFS IN THE EVENING)

REACTIONS (4)
  - Wrong technique in product usage process [Unknown]
  - Off label use [Unknown]
  - Device delivery system issue [Unknown]
  - Device issue [Unknown]
